FAERS Safety Report 5457232-3 (Version None)
Quarter: 2007Q3

REPORT INFORMATION
  Report Type: 
  Country: None (occurrence: None)
  Receive Date: 20070918
  Receipt Date: 20070418
  Transmission Date: 20080115
  Serious: No
  Sender: FDA-Public Use
  Company Number: US-ASTRAZENECA-2007UW01193

PATIENT
  Age: 30 Year
  Sex: Female
  Weight: 88.6 kg

DRUGS (10)
  1. SEROQUEL [Suspect]
     Indication: BIPOLAR DISORDER
     Route: 048
     Dates: start: 20030603, end: 20061001
  2. SEROQUEL [Suspect]
     Route: 048
     Dates: start: 20060809, end: 20061202
  3. SEROQUEL [Suspect]
     Route: 048
     Dates: start: 20061007, end: 20070331
  4. LITHIUM CARBONATE [Concomitant]
  5. WELLBUTRIN [Concomitant]
  6. CONCERTA [Concomitant]
  7. PRENATAL VITAMINS [Concomitant]
     Indication: PREGNANCY
     Dosage: 1 DAILY
     Dates: start: 20060901
  8. SUDAFED 12 HOUR [Concomitant]
     Dates: start: 20060701, end: 20060701
  9. ROBITUSSIN [Concomitant]
     Dosage: 1-3 TBSP DAILY
     Dates: start: 20060701, end: 20060701
  10. TYLENOL (CAPLET) [Concomitant]

REACTIONS (2)
  - DRUG EXPOSURE DURING PREGNANCY [None]
  - GESTATIONAL DIABETES [None]
